FAERS Safety Report 24888239 (Version 1)
Quarter: 2025Q1

REPORT INFORMATION
  Report Type: Spontaneous
  Country: GB (occurrence: GB)
  Receive Date: 20250127
  Receipt Date: 20250127
  Transmission Date: 20250409
  Serious: Yes (Death, Life-Threatening, Other)
  Sender: JUBILANT
  Company Number: None

PATIENT
  Age: 75 Year
  Sex: Female
  Weight: 46 kg

DRUGS (19)
  1. SILDENAFIL CITRATE [Suspect]
     Active Substance: SILDENAFIL CITRATE
     Indication: Product used for unknown indication
     Route: 065
  2. RANITIDINE [Concomitant]
     Active Substance: RANITIDINE
     Indication: Product used for unknown indication
     Dosage: 1 DOSAGE FORM, ONCE PER DAY
     Route: 065
     Dates: start: 20161108
  3. ALBUTEROL [Concomitant]
     Active Substance: ALBUTEROL
     Indication: Product used for unknown indication
     Dates: start: 20161108
  4. LIXISENATIDE [Concomitant]
     Active Substance: LIXISENATIDE
     Indication: Product used for unknown indication
     Dosage: UNK, ONCE PER DAY
     Route: 065
     Dates: start: 20180213
  5. INSULIN ASPART [Concomitant]
     Active Substance: INSULIN ASPART
     Indication: Product used for unknown indication
     Route: 065
     Dates: start: 20180319
  6. INDAPAMIDE [Concomitant]
     Active Substance: INDAPAMIDE
     Indication: Product used for unknown indication
     Dosage: 1 DOSAGE FORM, ONCE PER DAY (TAKE ONE EACH MORNING)
     Route: 065
     Dates: start: 20180319
  7. ACETAMINOPHEN [Concomitant]
     Active Substance: ACETAMINOPHEN
     Indication: Product used for unknown indication
     Dosage: 2 DOSAGE FORM, 4 TIMES PER DAY
     Route: 065
     Dates: start: 20180621
  8. BECLOMETHASONE\FORMOTEROL [Concomitant]
     Active Substance: BECLOMETHASONE\FORMOTEROL
     Indication: Product used for unknown indication
     Dosage: 1 DOSAGE FORM, 2 TIMES PER DAY
     Route: 065
     Dates: start: 20180802
  9. IBUPROFEN [Concomitant]
     Active Substance: IBUPROFEN
     Indication: Product used for unknown indication
     Dosage: 1 DOSAGE FORM, 3 TIMES PER DAY
     Route: 065
     Dates: start: 20180802
  10. BISOPROLOL [Concomitant]
     Active Substance: BISOPROLOL
     Indication: Product used for unknown indication
     Dosage: 1 DOSAGE FORM, ONCE PER DAY
     Route: 065
     Dates: start: 20190827
  11. GABAPENTIN [Concomitant]
     Active Substance: GABAPENTIN
     Indication: Product used for unknown indication
     Dosage: 1 DOSAGE FORM, 3 TIMES PER DAY
     Route: 065
     Dates: start: 20190827
  12. CITALOPRAM [Concomitant]
     Active Substance: CITALOPRAM
     Indication: Product used for unknown indication
     Dosage: 1 DOSAGE FORM, ONCE PER DAY
     Route: 065
     Dates: start: 20211117
  13. CODEINE PHOSPHATE [Concomitant]
     Active Substance: CODEINE PHOSPHATE
     Indication: Product used for unknown indication
     Dosage: 1 DOSAGE FORM, 4 TIMES PER DAY
     Route: 065
     Dates: start: 20220805
  14. HYPROMELLOSES [Concomitant]
     Active Substance: HYPROMELLOSES
     Indication: Product used for unknown indication
     Route: 065
     Dates: start: 20220819
  15. ATORVASTATIN [Concomitant]
     Active Substance: ATORVASTATIN
     Indication: Product used for unknown indication
     Dosage: 1 DOSAGE FORM, ONCE PER DAY
     Route: 065
     Dates: start: 20221102
  16. VAGIRUX [Concomitant]
     Indication: Product used for unknown indication
     Dosage: 1 DOSAGE FORM, PER WEEK (WASH APPLICATOR AFTER AND BE...)
     Route: 065
     Dates: start: 20221102
  17. BD VIVA [Concomitant]
     Indication: Product used for unknown indication
     Dates: start: 20190724
  18. VENTOLIN [Concomitant]
     Active Substance: ALBUTEROL SULFATE
     Indication: Product used for unknown indication
     Dates: start: 20190828
  19. ASPIRIN [Concomitant]
     Active Substance: ASPIRIN
     Indication: Product used for unknown indication
     Dosage: 1 DOSAGE FORM, ONCE PER DAY
     Dates: start: 20230214

REACTIONS (2)
  - Pharyngeal swelling [Fatal]
  - Anaphylactic reaction [Not Recovered/Not Resolved]
